FAERS Safety Report 9281655 (Version 1)
Quarter: 2013Q2

REPORT INFORMATION
  Report Type: Spontaneous
  Country: US (occurrence: US)
  Receive Date: 20130509
  Receipt Date: 20130509
  Transmission Date: 20140414
  Serious: Yes (Other)
  Sender: FDA-Public Use
  Company Number: US-MYLANLABS-2013S1009568

PATIENT
  Sex: 0

DRUGS (2)
  1. PROPRANOLOL [Suspect]
     Indication: PHACES SYNDROME
     Dosage: 1.5 MG/KG/D DIVIDED 3X DAILY; WITH SUBSEQUENT INCREASE
     Route: 048
  2. PROPRANOLOL [Suspect]
     Indication: PHACES SYNDROME
     Dosage: ATTEMPTED DOSE INCREASE
     Route: 048

REACTIONS (2)
  - Skin ulcer [Recovered/Resolved]
  - Condition aggravated [Recovered/Resolved]
